FAERS Safety Report 8014004-3 (Version None)
Quarter: 2011Q4

REPORT INFORMATION
  Report Type: 
  Country: None (occurrence: None)
  Receive Date: 20111229
  Receipt Date: 20111213
  Transmission Date: 20120403
  Serious: Yes (Other)
  Sender: FDA-Public Use
  Company Number: US-ROCHE-776830

PATIENT
  Sex: Female
  Weight: 54.48 kg

DRUGS (4)
  1. ACCUTANE [Suspect]
     Indication: ACNE
     Route: 048
  2. ACCUTANE [Suspect]
  3. ACCUTANE [Suspect]
  4. ACCUTANE [Suspect]
     Dates: start: 19990210, end: 19990701

REACTIONS (12)
  - EPISTAXIS [None]
  - FATIGUE [None]
  - DEPRESSION [None]
  - BONE DISORDER [None]
  - CROHN'S DISEASE [None]
  - ARTHRALGIA [None]
  - ALOPECIA [None]
  - INFLAMMATORY BOWEL DISEASE [None]
  - THORACIC OUTLET SYNDROME [None]
  - IRRITABLE BOWEL SYNDROME [None]
  - APHTHOUS STOMATITIS [None]
  - SPINAL FUSION SURGERY [None]
